FAERS Safety Report 6266930-3 (Version None)
Quarter: 2009Q3

REPORT INFORMATION
  Report Type: 
  Country: None (occurrence: None)
  Receive Date: 20090714
  Receipt Date: 20090707
  Transmission Date: 20100115
  Serious: Yes (Hospitalization)
  Sender: FDA-Public Use
  Company Number: US-ROXANE LABORATORIES, INC.-2009-RO-00660RO

PATIENT
  Age: 41 Year
  Sex: Male

DRUGS (1)
  1. METHADONE HCL [Suspect]

REACTIONS (4)
  - PLEURAL EFFUSION [None]
  - PNEUMONIA [None]
  - PNEUMOTHORAX [None]
  - SILICON GRANULOMA [None]
